FAERS Safety Report 9012067 (Version 1)
Quarter: 2012Q4

REPORT INFORMATION
  Report Type: Spontaneous
  Country: DK (occurrence: None)
  Receive Date: 20121228
  Receipt Date: 20121228
  Transmission Date: 20130627
  Serious: Yes (Disabling)
  Sender: FDA-Public Use
  Company Number: 2012MA014300

PATIENT
  Age: 61 Year
  Sex: Male

DRUGS (5)
  1. FINASTERIDE TABLETS, USP 5 MG (ATLLC) (FINASTERIDE) [Suspect]
     Route: 048
     Dates: start: 20121031, end: 20121203
  2. TAMSULOSIN [Suspect]
     Route: 048
     Dates: start: 20121031, end: 20121203
  3. SAW PALMETTO [Concomitant]
  4. FINASTERIDE [Concomitant]
  5. TAMSULOSIN [Concomitant]

REACTIONS (6)
  - Irritability [None]
  - Impatience [None]
  - Erectile dysfunction [None]
  - Sexual dysfunction [None]
  - Genital hypoaesthesia [None]
  - Social avoidant behaviour [None]
